FAERS Safety Report 5028144-4 (Version None)
Quarter: 2006Q2

REPORT INFORMATION
  Report Type: 
  Country: None (occurrence: None)
  Receive Date: 20060613
  Receipt Date: 20060605
  Transmission Date: 20061013
  Serious: Yes (Other)
  Sender: FDA-Public Use
  Company Number: S06-USA-01617-01

PATIENT
  Age: 72 Year
  Sex: Female

DRUGS (3)
  1. LEXAPRO [Suspect]
     Indication: ANXIETY
     Dosage: 5 MG QD PO
     Route: 048
     Dates: start: 20051201
  2. EVISTA [Concomitant]
  3. ACTONEL [Concomitant]

REACTIONS (1)
  - HYPOTHYROIDISM [None]
